FAERS Safety Report 15551957 (Version 4)
Quarter: 2019Q4

REPORT INFORMATION
  Report Type: Spontaneous
  Country: US (occurrence: US)
  Receive Date: 20181025
  Receipt Date: 20191018
  Transmission Date: 20200122
  Serious: Yes (Other)
  Sender: FDA-Public Use
  Company Number: US-VERTEX PHARMACEUTICALS-2018-007799

PATIENT
  Age: 44 Year
  Sex: Female
  Weight: 66 kg

DRUGS (15)
  1. MEPHYTON [Concomitant]
     Active Substance: PHYTONADIONE
  2. HYPERTONIC SALINE SOLUTION [Concomitant]
     Active Substance: SODIUM CHLORIDE
     Dosage: 4 MILLILITER, BID
     Route: 055
  3. VITAMIN K [Concomitant]
     Active Substance: PHYTONADIONE
     Dosage: 5 MG, QD
     Route: 048
  4. ALBUTEROL                          /00139501/ [Concomitant]
     Active Substance: ALBUTEROL
     Dosage: UNK
     Route: 055
  5. VITAMIN D                          /00107901/ [Concomitant]
     Active Substance: ERGOCALCIFEROL
     Dosage: 8000 INTERNATIONAL UNIT, QD
     Route: 048
  6. CAYSTON [Concomitant]
     Active Substance: AZTREONAM
     Route: 055
  7. ELDERBERRY [SAMBUCUS NIGRA] [Concomitant]
  8. PULMOZYME [Concomitant]
     Active Substance: DORNASE ALFA
     Dosage: 1 MG, QD
     Route: 055
  9. ZINC [ZINC OXIDE] [Concomitant]
  10. ZENPEP [Concomitant]
     Active Substance: PANCRELIPASE AMYLASE\PANCRELIPASE LIPASE\PANCRELIPASE PROTEASE
     Dosage: 3-10-14 KCAPSULE
     Route: 048
     Dates: start: 19760101
  11. VITAMIN E                          /00110501/ [Concomitant]
     Active Substance: TOCOPHEROL
     Dosage: UNK
  12. OREGANO OIL [Concomitant]
  13. VITAMIN A [RETINOL ACETATE] [Concomitant]
     Dosage: 10000 UNK
  14. SYMDEKO [Suspect]
     Active Substance: IVACAFTOR\TEZACAFTOR
     Indication: CYSTIC FIBROSIS
     Dosage: 100MG TEZACAFTOR/150MG IVACAFTOR AM; 150MG IVACAFTOR PM
     Route: 048
     Dates: start: 20180916
  15. AZITHROMYCIN ANHYDROUS. [Concomitant]
     Active Substance: AZITHROMYCIN ANHYDROUS
     Dosage: 500 MG
     Route: 048

REACTIONS (4)
  - Anxiety [Recovered/Resolved]
  - Obsessive-compulsive disorder [Unknown]
  - Agoraphobia [Recovered/Resolved]
  - Mysophobia [Not Recovered/Not Resolved]

NARRATIVE: CASE EVENT DATE: 201809
